FAERS Safety Report 4760739-5 (Version None)
Quarter: 2005Q3

REPORT INFORMATION
  Report Type: 
  Country: None (occurrence: None)
  Receive Date: 20050826
  Receipt Date: 20050110
  Transmission Date: 20060218
  Serious: Yes (Other)
  Sender: FDA-Public Use
  Company Number: USA-2005-0018282

PATIENT
  Age: 54 Year
  Sex: Male
  Weight: 108.8 kg

DRUGS (5)
  1. OXYCONTIN [Suspect]
     Indication: PAIN
     Dosage: 80 MG, TID
     Dates: start: 19990101
  2. ROXICODONE [Concomitant]
  3. HYZAAR [Concomitant]
  4. TIAZAC [Concomitant]
  5. VITAMIN CAP [Concomitant]

REACTIONS (3)
  - DRUG ABUSER [None]
  - INADEQUATE ANALGESIA [None]
  - OEDEMA PERIPHERAL [None]
